FAERS Safety Report 7337435-3 (Version None)
Quarter: 2011Q1

REPORT INFORMATION
  Report Type: 
  Country: None (occurrence: None)
  Receive Date: 20110308
  Receipt Date: 20110209
  Transmission Date: 20110831
  Serious: No
  Sender: FDA-Public Use
  Company Number: US-B.I. PHARMACEUTICALS,INC./RIDGEFIELD-2010-BP-14057BP

PATIENT
  Sex: Female

DRUGS (4)
  1. ALBUTEROL [Concomitant]
  2. COMBIVENT [Concomitant]
  3. SPIRIVA [Suspect]
     Indication: CHRONIC OBSTRUCTIVE PULMONARY DISEASE
     Dosage: 18 MCG
     Route: 055
     Dates: start: 20100901
  4. SPIRIVA [Suspect]
     Indication: ASTHMA

REACTIONS (2)
  - DYSPNOEA [None]
  - DRUG INEFFECTIVE [None]
